FAERS Safety Report 21933774 (Version 2)
Quarter: 2023Q1

REPORT INFORMATION
  Report Type: Spontaneous
  Country: MX (occurrence: None)
  Receive Date: 20230201
  Receipt Date: 20230207
  Transmission Date: 20230418
  Serious: Yes (Other)
  Sender: FDA-Public Use
  Company Number: MX-ROCHE-3024111

PATIENT
  Age: 1 Year
  Sex: Female
  Weight: 10.74 kg

DRUGS (8)
  1. TOCILIZUMAB [Suspect]
     Active Substance: TOCILIZUMAB
     Indication: Juvenile idiopathic arthritis
     Route: 042
     Dates: start: 2021
  2. TOCILIZUMAB [Suspect]
     Active Substance: TOCILIZUMAB
     Dosage: DOSE WAS NOT REPORTED
     Route: 042
     Dates: start: 2022
  3. METHOTREXATE [Concomitant]
     Active Substance: METHOTREXATE
     Dosage: 4 TABLETS + METHOTREXATE 12.5 MG/M2/WEEK
     Route: 048
  4. METICORTEN [Concomitant]
     Active Substance: PREDNISONE
     Route: 048
     Dates: start: 20220205, end: 20220219
  5. FOLIC ACID [Concomitant]
     Active Substance: FOLIC ACID
     Dosage: 1 TABLET ON MONDAYS AND FRIDAYS
  6. PREDNISONE [Concomitant]
     Active Substance: PREDNISONE
  7. ACETAMINOPHEN [Concomitant]
     Active Substance: ACETAMINOPHEN
     Route: 048
  8. DIPHENHYDRAMINE [Concomitant]
     Active Substance: DIPHENHYDRAMINE
     Route: 048

REACTIONS (2)
  - Juvenile idiopathic arthritis [Unknown]
  - Off label use [Unknown]

NARRATIVE: CASE EVENT DATE: 20211201
